FAERS Safety Report 13297618 (Version 6)
Quarter: 2018Q1

REPORT INFORMATION
  Report Type: Spontaneous
  Country: US (occurrence: US)
  Receive Date: 20170306
  Receipt Date: 20180212
  Transmission Date: 20180508
  Serious: No
  Sender: FDA-Public Use
  Company Number: US-PFIZER INC-2017090040

PATIENT
  Age: 52 Year
  Sex: Female

DRUGS (28)
  1. HUMULIN NOS [Concomitant]
     Active Substance: INSULIN HUMAN
     Dosage: 0.65 ML, 1X/DAY, (100 UNIT/ML (70-30), 0.65 ML (65 UNITS TOTAL), BEFORE BREAKFAST)
     Route: 058
  2. NOVOLIN [Concomitant]
     Active Substance: INSULIN HUMAN
     Dosage: 0.65 ML, 1X/DAY, (100 UNIT/ML (70-30), 0.65 ML (65 UNITS TOTAL), BEFORE BREAKFAST)
     Route: 058
  3. PRAVACHOL [Concomitant]
     Active Substance: PRAVASTATIN SODIUM
     Dosage: 10 MG, DAILY
     Route: 048
  4. VITAMIN D3 [Concomitant]
     Active Substance: CHOLECALCIFEROL
     Dosage: 2000 IU, DAILY
     Route: 048
  5. METFORMIN [Concomitant]
     Active Substance: METFORMIN HYDROCHLORIDE
     Dosage: UNK
  6. SYNTHROID [Concomitant]
     Active Substance: LEVOTHYROXINE SODIUM
     Dosage: 175 UG, UNK
  7. THERAGRAN [Concomitant]
     Active Substance: VITAMINS
     Dosage: UNK, (TAKE 1 TABLET BY MOUTH)
     Route: 048
  8. GEMFIBROZIL. [Concomitant]
     Active Substance: GEMFIBROZIL
     Dosage: UNK
  9. LYRICA [Suspect]
     Active Substance: PREGABALIN
     Dosage: 50 MG, 2X/DAY (1 CAPSULE BID X 1 WEEK)
     Dates: start: 20170224
  10. LYRICA [Suspect]
     Active Substance: PREGABALIN
     Dosage: 250 MG, DAILY (2 TAB QAM, 3 TABS QPM)
     Dates: start: 20180105
  11. COLCHICINE. [Concomitant]
     Active Substance: COLCHICINE
     Dosage: 1.2 MG, AS NEEDED, (TAKE 1 TABLET (0.6 MG TOTAL) BY MOUTH TWO (2) TIMES A DAY, FOR UP TO 5)
     Route: 048
  12. HUMULIN NOS [Concomitant]
     Active Substance: INSULIN HUMAN
     Dosage: 0.45 ML, 1X/DAY, (0.45 ML, 1X/DAY, (100 UNIT/ML (70-30), 0.45 ML (45 UNITS TOTAL), PRIOR TO DINNER)
     Route: 058
  13. NOVOLIN [Concomitant]
     Active Substance: INSULIN HUMAN
     Dosage: 0.45 UNK, UNK, (0.45 ML, 1X/DAY, (100 UNIT/ML (70-30), 0.45 ML (45 UNITS TOTAL), PRIOR TO DINNER)
     Route: 058
  14. LEVOTHROID [Concomitant]
     Active Substance: LEVOTHYROXINE SODIUM
     Dosage: 175 MG, UNK
  15. LEVOTHROID [Concomitant]
     Active Substance: LEVOTHYROXINE SODIUM
     Dosage: 175 UG, 1X/DAY
     Route: 048
  16. LITHIUM. [Concomitant]
     Active Substance: LITHIUM
     Dosage: 900 MG, 1X/DAY
     Route: 048
  17. ASA [Concomitant]
     Active Substance: ASPIRIN
     Dosage: UNK
  18. LOPID [Concomitant]
     Active Substance: GEMFIBROZIL
     Dosage: 600 MG, 2X/DAY
     Route: 048
  19. SEROQUEL [Concomitant]
     Active Substance: QUETIAPINE FUMARATE
     Dosage: 600 MG, 1X/DAY
     Route: 048
  20. FISH OIL W/OMEGA-3 FATTY ACIDS [Concomitant]
     Active Substance: FISH OIL\OMEGA-3 FATTY ACIDS
     Dosage: 2 G, DAILY
     Route: 048
  21. QUETIAPINE. [Concomitant]
     Active Substance: QUETIAPINE
     Dosage: UNK
  22. SYNTHROID [Concomitant]
     Active Substance: LEVOTHYROXINE SODIUM
     Dosage: 175 UG, 1X/DAY
     Route: 048
  23. INSULIN [Concomitant]
     Active Substance: INSULIN NOS
     Dosage: UNK
  24. LYRICA [Suspect]
     Active Substance: PREGABALIN
     Dosage: 100 MG, 2X/DAY (2 CAPSULES BID)
  25. GLUCOPHAGE [Concomitant]
     Active Substance: METFORMIN HYDROCHLORIDE
     Dosage: 1000 MG, 2X/DAY
     Route: 048
  26. ASPIRIN. [Concomitant]
     Active Substance: ASPIRIN
     Dosage: 81 MG, DAILY
  27. BENADRYL [Concomitant]
     Active Substance: DIPHENHYDRAMINE HYDROCHLORIDE
     Indication: SLEEP DISORDER
     Dosage: 50 MG, AS NEEDED, (TAKE 50 MG BY MOUTH NIGHTLY)
     Route: 048
  28. PRAVASTATIN. [Concomitant]
     Active Substance: PRAVASTATIN
     Dosage: UNK

REACTIONS (2)
  - Feeling abnormal [Unknown]
  - Intentional product misuse [Unknown]
